FAERS Safety Report 19020929 (Version 3)
Quarter: 2021Q2

REPORT INFORMATION
  Report Type: Spontaneous
  Country: US (occurrence: US)
  Receive Date: 20210317
  Receipt Date: 20210416
  Transmission Date: 20210717
  Serious: Yes (Other)
  Sender: FDA-Public Use
  Company Number: US-009507513-2103USA004123

PATIENT
  Age: 26 Year
  Sex: Female

DRUGS (5)
  1. PEMETREXED DISODIUM [Suspect]
     Active Substance: PEMETREXED DISODIUM
     Indication: LUNG ADENOCARCINOMA STAGE IV
     Dosage: 500 MILLIGRAM/SQ. METER(800 MILLIGRAM), Q3W; RECEIVED 6 CYCLES
     Route: 042
  2. CARBOPLATIN. [Suspect]
     Active Substance: CARBOPLATIN
     Indication: LUNG ADENOCARCINOMA STAGE IV
     Dosage: TARGET AUC = 5, EVERY 3 WEEKS(Q3W); FOR 5 CYCLES
     Route: 042
  3. KEYTRUDA [Suspect]
     Active Substance: PEMBROLIZUMAB
     Dosage: 200 MILLIGRAM, EVERY 6 WEEKS
     Route: 042
  4. OLAPARIB. [Suspect]
     Active Substance: OLAPARIB
     Indication: LUNG ADENOCARCINOMA STAGE IV
     Dosage: 150 MILLIGRAM, BID
     Route: 048
  5. KEYTRUDA [Suspect]
     Active Substance: PEMBROLIZUMAB
     Indication: LUNG ADENOCARCINOMA STAGE IV
     Dosage: 200 MILLIGRAM, Q3W
     Route: 042

REACTIONS (8)
  - Off label use [Unknown]
  - Neuropathy peripheral [Unknown]
  - Nausea [Unknown]
  - Alopecia [Unknown]
  - Arthralgia [Unknown]
  - Constipation [Unknown]
  - Menometrorrhagia [Unknown]
  - Dyspepsia [Unknown]
